FAERS Safety Report 10447058 (Version 3)
Quarter: 2014Q4

REPORT INFORMATION
  Report Type: Spontaneous
  Country: US (occurrence: US)
  Receive Date: 20140911
  Receipt Date: 20141010
  Transmission Date: 20150528
  Serious: Yes (Hospitalization, Other)
  Sender: FDA-Public Use
  Company Number: US-009507513-1409USA003379

PATIENT
  Age: 21 Year
  Sex: Female
  Weight: 58.96 kg

DRUGS (2)
  1. NUVARING [Suspect]
     Active Substance: ETHINYL ESTRADIOL\ETONOGESTREL
     Dosage: UNK
     Route: 067
     Dates: start: 20140430, end: 20140709
  2. NUVARING [Suspect]
     Active Substance: ETHINYL ESTRADIOL\ETONOGESTREL
     Indication: CONTRACEPTION
     Dosage: 1 RING
     Route: 066
     Dates: start: 20140701, end: 20140709

REACTIONS (8)
  - Metaplasia [Unknown]
  - Overdose [Unknown]
  - Removal of foreign body [Recovered/Resolved]
  - Incorrect route of drug administration [Unknown]
  - Urinary tract infection [Recovered/Resolved]
  - Cystoscopy [Recovered/Resolved]
  - Device dislocation [Recovered/Resolved]
  - Bladder catheterisation [Recovered/Resolved]

NARRATIVE: CASE EVENT DATE: 201407
